FAERS Safety Report 4765201-1 (Version None)
Quarter: 2005Q3

REPORT INFORMATION
  Report Type: 
  Country: None (occurrence: None)
  Receive Date: 20050906
  Receipt Date: 20050822
  Transmission Date: 20060218
  Serious: Yes (Other)
  Sender: FDA-Public Use
  Company Number: 2005119082

PATIENT
  Sex: Female

DRUGS (12)
  1. DETROL LA [Suspect]
     Indication: BLADDER DISORDER
     Dosage: 8 MG (4 MG, 2 IN 1 D), ORAL
     Route: 048
  2. ASPIRIN [Suspect]
     Indication: ILL-DEFINED DISORDER
  3. NEXIUM [Suspect]
     Indication: ILL-DEFINED DISORDER
     Dosage: 10 MG (10 MG, 1 IN 1 D)
  4. CELEXA [Suspect]
     Indication: ILL-DEFINED DISORDER
     Dosage: 40 MG (40 MG, 1 IN 1 D)
  5. LOTREL [Suspect]
     Indication: ILL-DEFINED DISORDER
     Dosage: 10/20 (DAILY INTERVAL: EVERY DAY)
  6. HYDROCHLOROTHIAZIDE [Suspect]
     Indication: ILL-DEFINED DISORDER
     Dosage: 25 MG (25 MG, 1 IN 1 D)
  7. ACTONEL [Concomitant]
  8. CENTRUM (MINERALS NOS, VITAMINS NOS) [Concomitant]
  9. GLUCOSAMINE (GLUCOSAMINE) [Concomitant]
  10. CALCIUM (CALCIUM) [Concomitant]
  11. ALEVE [Concomitant]
  12. B COMPLEX (NICOTINAMIDE, PYRIDOXINE HYDROCHLORIDE, RIBOFLAVIN, THIAMIN [Concomitant]

REACTIONS (6)
  - BLADDER DISORDER [None]
  - CARPAL TUNNEL SYNDROME [None]
  - DRUG INEFFECTIVE [None]
  - DRUG INTERACTION [None]
  - JOINT LOCK [None]
  - TENDONITIS [None]
